FAERS Safety Report 17899381 (Version 4)
Quarter: 2020Q3

REPORT INFORMATION
  Report Type: Report from Study
  Country: None (occurrence: US)
  Receive Date: 20200615
  Receipt Date: 20200727
  Transmission Date: 20201103
  Serious: Yes (Hospitalization, Other)
  Sender: FDA-Public Use
  Company Number: US-ABBVIE-20K-163-3431955-00

PATIENT
  Sex: Male

DRUGS (1)
  1. HUMIRA [Suspect]
     Active Substance: ADALIMUMAB
     Indication: PSORIATIC ARTHROPATHY
     Route: 058
     Dates: start: 20200301

REACTIONS (8)
  - Ear infection [Unknown]
  - Oesophageal varices haemorrhage [Recovering/Resolving]
  - Skin exfoliation [Not Recovered/Not Resolved]
  - Renal failure [Recovered/Resolved]
  - Alopecia [Not Recovered/Not Resolved]
  - Hypertension [Recovering/Resolving]
  - Haematemesis [Unknown]
  - Dry skin [Recovering/Resolving]

NARRATIVE: CASE EVENT DATE: 2020
